FAERS Safety Report 9487014 (Version 2)
Quarter: 2013Q3

REPORT INFORMATION
  Report Type: Spontaneous
  Country: JP (occurrence: JP)
  Receive Date: 20130829
  Receipt Date: 20130930
  Transmission Date: 20140515
  Serious: Yes (Hospitalization)
  Sender: FDA-Public Use
  Company Number: JP-GLAXOSMITHKLINE-B0918094A

PATIENT
  Age: 61 Year
  Sex: Female

DRUGS (8)
  1. VALTREX [Suspect]
     Indication: HERPES ZOSTER
     Dosage: 1000MG PER DAY
     Route: 048
     Dates: start: 20130207, end: 20130209
  2. ZOTEPINE [Concomitant]
     Indication: PSYCHIATRIC SYMPTOM
     Dosage: 50MG TWICE PER DAY
     Route: 048
  3. LEMONAMIN [Concomitant]
     Indication: PSYCHIATRIC SYMPTOM
     Dosage: 1MG PER DAY
     Route: 048
  4. GASCON [Concomitant]
     Indication: FUNCTIONAL GASTROINTESTINAL DISORDER
     Dosage: 40MG TWICE PER DAY
     Route: 048
  5. GASMOTIN [Concomitant]
     Indication: FUNCTIONAL GASTROINTESTINAL DISORDER
     Dosage: 5MG TWICE PER DAY
     Route: 048
  6. POLYFUL [Concomitant]
     Indication: CONSTIPATION
     Dosage: 1.2G THREE TIMES PER DAY
     Route: 048
  7. FLUNITRAZEPAM [Concomitant]
     Indication: SLEEP DISORDER
     Dosage: 2MG PER DAY
     Route: 048
  8. HOKUNALIN [Concomitant]
     Indication: ASTHMA
     Dosage: 2MG PER DAY
     Route: 062

REACTIONS (2)
  - Altered state of consciousness [Not Recovered/Not Resolved]
  - Asthenia [Unknown]
